FAERS Safety Report 16834571 (Version 6)
Quarter: 2024Q4

REPORT INFORMATION
  Report Type: Spontaneous
  Country: CZ (occurrence: CZ)
  Receive Date: 20190920
  Receipt Date: 20241223
  Transmission Date: 20250114
  Serious: Yes (Hospitalization, Other)
  Sender: MYLAN
  Company Number: CZ-ACCORD-122436

PATIENT
  Sex: Male

DRUGS (22)
  1. IRINOTECAN [Suspect]
     Active Substance: IRINOTECAN
     Indication: Colorectal cancer metastatic
     Dosage: UNK UNK, CYCLE
     Route: 065
     Dates: start: 201712
  2. OXALIPLATIN [Suspect]
     Active Substance: OXALIPLATIN
     Indication: Metastatic neoplasm
     Dosage: 8 UNK, CYCLE
     Route: 065
     Dates: start: 201703
  3. OXALIPLATIN [Suspect]
     Active Substance: OXALIPLATIN
     Indication: Metastatic neoplasm
  4. CAPECITABINE [Suspect]
     Active Substance: CAPECITABINE
     Indication: Rectal cancer
     Dosage: 3-0-3 PER DAY
     Route: 048
     Dates: start: 201606
  5. CAPECITABINE [Suspect]
     Active Substance: CAPECITABINE
     Dosage: UNK
     Route: 065
     Dates: start: 201703
  6. CAPECITABINE [Suspect]
     Active Substance: CAPECITABINE
     Dosage: 3-0-3
     Route: 065
     Dates: start: 201703
  7. AVASTIN [Suspect]
     Active Substance: BEVACIZUMAB
     Indication: Metastatic neoplasm
     Dosage: UNK
     Route: 065
     Dates: start: 201703
  8. AVASTIN [Suspect]
     Active Substance: BEVACIZUMAB
     Indication: Rectal cancer
  9. LEUCOVORIN [Suspect]
     Active Substance: LEUCOVORIN\LEUCOVORIN CALCIUM
     Indication: Metastases to lung
     Dosage: UNK, CYCLE
     Route: 065
     Dates: start: 201712
  10. LEUCOVORIN [Suspect]
     Active Substance: LEUCOVORIN\LEUCOVORIN CALCIUM
     Indication: Colorectal cancer metastatic
     Dosage: UNK, CYCLE
     Route: 065
  11. XELODA [Suspect]
     Active Substance: CAPECITABINE
     Indication: Metastatic neoplasm
     Dosage: UNK
     Route: 065
     Dates: start: 201703
  12. FLUOROURACIL [Suspect]
     Active Substance: FLUOROURACIL
     Indication: Metastases to lung
     Dosage: UNK UNK, CYCLE
     Route: 065
     Dates: start: 201712
  13. FLUOROURACIL [Suspect]
     Active Substance: FLUOROURACIL
     Indication: Rectal cancer
  14. FLUOROURACIL [Suspect]
     Active Substance: FLUOROURACIL
     Indication: Colorectal cancer metastatic
  15. TRIFLURIDINE [Suspect]
     Active Substance: TRIFLURIDINE
     Indication: Metastases to lung
     Dosage: 60 MILLIGRAM, BID, 3-0-3
     Route: 065
     Dates: start: 201804
  16. TRIFLURIDINE [Suspect]
     Active Substance: TRIFLURIDINE
     Indication: Rectal cancer
  17. TIPIRACIL [Suspect]
     Active Substance: TIPIRACIL
     Indication: Rectal cancer
     Dosage: TBL 3-0-3
     Route: 065
     Dates: start: 201804
  18. LEUCOVORIN CALCIUM [Suspect]
     Active Substance: LEUCOVORIN CALCIUM
     Indication: Colorectal cancer metastatic
     Dosage: UNK
     Route: 065
  19. ZALTRAP [Suspect]
     Active Substance: ZIV-AFLIBERCEPT
     Indication: Metastases to lung
     Dosage: UNK
     Route: 065
     Dates: start: 201712
  20. ZALTRAP [Suspect]
     Active Substance: ZIV-AFLIBERCEPT
     Indication: Rectal cancer
     Dosage: UNK UNK, CYCLE
     Route: 065
  21. ZALTRAP [Suspect]
     Active Substance: ZIV-AFLIBERCEPT
     Indication: Colorectal cancer metastatic
  22. PERINDOPRIL [Concomitant]
     Active Substance: PERINDOPRIL
     Indication: Hypertension
     Dosage: UNK
     Route: 065

REACTIONS (16)
  - Peritonsillar abscess [Recovered/Resolved]
  - Leukopenia [Unknown]
  - Neuropathy peripheral [Not Recovered/Not Resolved]
  - Neutropenia [Unknown]
  - Palmar-plantar erythrodysaesthesia syndrome [Unknown]
  - Gastrointestinal toxicity [Unknown]
  - Skin toxicity [Unknown]
  - Disease progression [Unknown]
  - Condition aggravated [Unknown]
  - Dyspepsia [Unknown]
  - Weight decreased [Unknown]
  - Mucosal inflammation [Unknown]
  - Diarrhoea [Unknown]
  - Hypertension [Recovered/Resolved]
  - Therapy partial responder [Unknown]
  - Defaecation urgency [Unknown]

NARRATIVE: CASE EVENT DATE: 20170301
